FAERS Safety Report 4895141-9 (Version None)
Quarter: 2006Q1

REPORT INFORMATION
  Report Type: 
  Country: None (occurrence: None)
  Receive Date: 20060125
  Receipt Date: 20060113
  Transmission Date: 20060701
  Serious: Yes (Hospitalization)
  Sender: FDA-Public Use
  Company Number: US016258

PATIENT
  Age: 52 Year
  Sex: Male

DRUGS (5)
  1. MODAFINIL [Suspect]
     Indication: SOMNOLENCE
     Dosage: 200 MG QD ORAL
     Route: 048
     Dates: start: 20050727, end: 20050831
  2. MODAFINIL [Suspect]
     Indication: SOMNOLENCE
     Dosage: 300 MG QD ORAL
     Route: 048
     Dates: start: 20050901, end: 20051019
  3. MODAFINIL [Suspect]
     Indication: SOMNOLENCE
     Dosage: 200 MG QD ORAL
     Route: 048
     Dates: start: 20051020, end: 20051217
  4. DEROXAT [Concomitant]
  5. ATARAX [Concomitant]

REACTIONS (4)
  - AGITATION [None]
  - DELIRIUM [None]
  - DYSKINESIA [None]
  - MANIA [None]
